FAERS Safety Report 9183172 (Version 1)
Quarter: 2013Q1

REPORT INFORMATION
  Report Type: Spontaneous
  Country: US (occurrence: US)
  Receive Date: 20130322
  Receipt Date: 20130322
  Transmission Date: 20140127
  Serious: Yes (Other)
  Sender: FDA-Public Use
  Company Number: US-BRISTOL-MYERS SQUIBB COMPANY-16917932

PATIENT
  Age: 60 Year
  Sex: Female
  Weight: 71.65 kg

DRUGS (1)
  1. ERBITUX [Suspect]
     Indication: COLON CANCER
     Dosage: RECEIVED 3RD CYCLE ON 13AUG2012 AND 2ND INF ON 20AUG12 AND 3RD INF ON 27AUG12
     Dates: start: 200902

REACTIONS (7)
  - Metastases to lymph nodes [Unknown]
  - Onychomadesis [Unknown]
  - Dry skin [Unknown]
  - Hair growth abnormal [Unknown]
  - Stomatitis [Unknown]
  - Pruritus [Unknown]
  - Dandruff [Unknown]
